FAERS Safety Report 13738262 (Version 1)
Quarter: 2017Q3

REPORT INFORMATION
  Report Type: Spontaneous
  Country: BR (occurrence: BR)
  Receive Date: 20170710
  Receipt Date: 20170710
  Transmission Date: 20171127
  Serious: Yes (Hospitalization, Other)
  Sender: FDA-Public Use
  Company Number: PHHY2010BR67727

PATIENT
  Age: 64 Year
  Sex: Female

DRUGS (12)
  1. VICOG [Concomitant]
     Active Substance: VINPOCETINE
     Indication: MEMORY IMPAIRMENT
     Dosage: 5 MG, QHS
     Route: 048
  2. VICOG [Concomitant]
     Active Substance: VINPOCETINE
     Indication: TAENIASIS
  3. HYDERGINE [Suspect]
     Active Substance: ERGOLOID MESYLATES
     Dosage: 6 MG, UNK
  4. OMEPRAZOLE. [Concomitant]
     Active Substance: OMEPRAZOLE
     Indication: PROPHYLAXIS
     Dosage: 2 DF (20 MG EACH TABLET), DAILY
  5. ATENOLOL AND CHLORTHALIDONE [Concomitant]
     Active Substance: ATENOLOL\CHLORTHALIDONE
     Dosage: 0.5 DF,  (WHEN GOT NERVOUS)
     Route: 048
  6. RIVOTRIL [Concomitant]
     Active Substance: CLONAZEPAM
     Indication: SEDATION
     Dosage: 3 GTT, DAILY
  7. SIMETHICONE (DIMETHICONE) [Concomitant]
     Active Substance: DIMETHICONE
     Dosage: 2 DF, UNK
     Route: 048
  8. HYDERGINE [Suspect]
     Active Substance: ERGOLOID MESYLATES
     Indication: MEMORY IMPAIRMENT
     Dosage: 6 MG, QHS
     Route: 048
  9. OMEPRAZOLE. [Concomitant]
     Active Substance: OMEPRAZOLE
     Dosage: 3 DF, DAILY
     Route: 048
  10. FLUOXETIN [Concomitant]
     Active Substance: FLUOXETINE HYDROCHLORIDE
     Dosage: 2 DF, DAILY
     Route: 048
  11. HYDERGINE [Suspect]
     Active Substance: ERGOLOID MESYLATES
     Indication: TAENIASIS
     Dosage: 4.5 MG, QHS
     Route: 048
  12. TEUTOVIT E [Concomitant]
     Dosage: 2 DF, DAILY
     Route: 048

REACTIONS (36)
  - Brain hypoxia [Unknown]
  - Abdominal pain upper [Unknown]
  - Tachycardia [Unknown]
  - Memory impairment [Not Recovered/Not Resolved]
  - Panic disorder [Not Recovered/Not Resolved]
  - Tremor [Recovered/Resolved]
  - Hypotension [Not Recovered/Not Resolved]
  - Lipoma [Recovering/Resolving]
  - Angina pectoris [Unknown]
  - Headache [Unknown]
  - Hypertension [Recovered/Resolved]
  - Cardiac failure [Unknown]
  - Depression [Not Recovered/Not Resolved]
  - Blood triglycerides abnormal [Recovered/Resolved]
  - Heart rate decreased [Not Recovered/Not Resolved]
  - Hiatus hernia [Recovered/Resolved]
  - Dizziness [Not Recovered/Not Resolved]
  - Decreased appetite [Not Recovered/Not Resolved]
  - Gait disturbance [Unknown]
  - Malaise [Unknown]
  - Blood cholesterol abnormal [Recovered/Resolved]
  - Upper limb fracture [Recovered/Resolved]
  - Dysphonia [Not Recovered/Not Resolved]
  - Hypokinesia [Recovered/Resolved]
  - Fall [Recovered/Resolved]
  - Balance disorder [Not Recovered/Not Resolved]
  - Aphasia [Unknown]
  - Psychiatric symptom [Unknown]
  - Reflux gastritis [Recovered/Resolved]
  - Nasal congestion [Not Recovered/Not Resolved]
  - Flatulence [Not Recovered/Not Resolved]
  - Constipation [Not Recovered/Not Resolved]
  - Crying [Not Recovered/Not Resolved]
  - Nervousness [Not Recovered/Not Resolved]
  - Gallbladder disorder [Unknown]
  - Poor quality sleep [Unknown]

NARRATIVE: CASE EVENT DATE: 20121223
